FAERS Safety Report 5430595-0 (Version None)
Quarter: 2007Q3

REPORT INFORMATION
  Report Type: 
  Country: None (occurrence: None)
  Receive Date: 20070830
  Receipt Date: 20070827
  Transmission Date: 20080115
  Serious: No
  Sender: FDA-Public Use
  Company Number: AT-ASTRAZENECA-2007PK01578

PATIENT
  Sex: Female

DRUGS (3)
  1. SEROQUEL [Suspect]
     Route: 048
  2. TEGRETOL [Concomitant]
  3. ZYPREXA [Concomitant]
     Indication: PSYCHOTIC DISORDER
     Dosage: 70 MG

REACTIONS (1)
  - LEUKOPENIA [None]
